FAERS Safety Report 6734162-8 (Version None)
Quarter: 2010Q2

REPORT INFORMATION
  Report Type: 
  Country: None (occurrence: None)
  Receive Date: 20100520
  Receipt Date: 20100512
  Transmission Date: 20101027
  Serious: Yes (Death, Hospitalization)
  Sender: FDA-Public Use
  Company Number: GXKR2010GB03269

PATIENT
  Age: 71 Year
  Sex: Female

DRUGS (2)
  1. VINORELBINE [Suspect]
     Indication: ADENOCARCINOMA
     Dosage: UNK
     Route: 065
     Dates: start: 20090901, end: 20091001
  2. CISPLATIN [Suspect]
     Indication: ADENOCARCINOMA
     Dosage: UNK
     Route: 065
     Dates: start: 20090901, end: 20091001

REACTIONS (4)
  - COUGH [None]
  - DYSPNOEA [None]
  - NEUTROPENIC SEPSIS [None]
  - PNEUMONIA KLEBSIELLA [None]
